FAERS Safety Report 4561046-6 (Version None)
Quarter: 2005Q1

REPORT INFORMATION
  Report Type: 
  Country: None (occurrence: None)
  Receive Date: 20050126
  Receipt Date: 20040924
  Transmission Date: 20050727
  Serious: No
  Sender: FDA-Public Use
  Company Number: US-BRISTOL-MYERS SQUIBB COMPANY-12711917

PATIENT
  Age: 66 Year
  Sex: Male
  Weight: 89 kg

DRUGS (12)
  1. GLUCOPHAGE [Suspect]
     Indication: DIABETES MELLITUS
     Route: 048
     Dates: start: 20040629
  2. COUMADIN [Concomitant]
     Dosage: 4 MG 4X/WEEK, 2MG 3X/WEEK
  3. VERAPAMIL HCL [Concomitant]
  4. HYDROCHLOROTHIAZIDE [Concomitant]
  5. TERAZOSIN [Concomitant]
  6. MOBIC [Concomitant]
  7. VALIUM [Concomitant]
  8. AMARYL [Concomitant]
  9. POTASSIUM [Concomitant]
  10. FLONASE [Concomitant]
  11. SINGULAIR [Concomitant]
  12. CALCIUM GLUCONATE [Concomitant]

REACTIONS (1)
  - ASTHENIA [None]
